FAERS Safety Report 4601394-4 (Version None)
Quarter: 2005Q1

REPORT INFORMATION
  Report Type: 
  Country: None (occurrence: None)
  Receive Date: 20050202
  Receipt Date: 20040907
  Transmission Date: 20050727
  Serious: Yes (Other)
  Sender: FDA-Public Use
  Company Number: 8007015

PATIENT
  Age: 50 Year
  Sex: Female

DRUGS (5)
  1. KEPPRA [Suspect]
     Indication: CONVULSION
     Dosage: 1000 MG 2/D PO
     Route: 048
     Dates: start: 20040601, end: 20040701
  2. KEPPRA [Suspect]
     Indication: CONVULSION
     Dosage: 1250 MG PO
     Route: 048
     Dates: start: 20040701
  3. PHENYTOIN SODIUM [Suspect]
     Indication: CONVULSION
     Dosage: 730 MG /D PO
     Route: 048
     Dates: start: 20040701, end: 20040801
  4. PHENYTOIN SODIUM [Suspect]
     Indication: CONVULSION
     Dosage: 600 MG /D PO
     Route: 048
     Dates: start: 20040801
  5. CLONAZEPAM [Concomitant]

REACTIONS (6)
  - CSF PRESSURE INCREASED [None]
  - DEPRESSED MOOD [None]
  - DEPRESSION SUICIDAL [None]
  - DRUG TOXICITY [None]
  - FEELING ABNORMAL [None]
  - PETIT MAL EPILEPSY [None]
